FAERS Safety Report 6415401-X (Version None)
Quarter: 2009Q4

REPORT INFORMATION
  Report Type: 
  Country: None (occurrence: None)
  Receive Date: 20091022
  Receipt Date: 20091014
  Transmission Date: 20100525
  Serious: Yes (Hospitalization)
  Sender: FDA-Public Use
  Company Number: SPV1-2009-02028

PATIENT
  Age: 27 Year
  Sex: Male

DRUGS (3)
  1. FOSRENOL [Suspect]
     Indication: HYPERPHOSPHATAEMIA
     Dosage: 500 MG,ORAL; 1000 MG, ORAL;  2000 MG,  ORAL
     Route: 048
     Dates: start: 20090314, end: 20090403
  2. FOSRENOL [Suspect]
     Indication: HYPERPHOSPHATAEMIA
     Dosage: 500 MG,ORAL; 1000 MG, ORAL;  2000 MG,  ORAL
     Route: 048
     Dates: start: 20090404, end: 20090424
  3. FOSRENOL [Suspect]
     Indication: HYPERPHOSPHATAEMIA
     Dosage: 500 MG,ORAL; 1000 MG, ORAL;  2000 MG,  ORAL
     Route: 048
     Dates: start: 20090425, end: 20090718

REACTIONS (1)
  - PANCYTOPENIA [None]
